FAERS Safety Report 9770147 (Version 2)
Quarter: 2013Q4

REPORT INFORMATION
  Report Type: Spontaneous
  Country: US (occurrence: US)
  Receive Date: 20131218
  Receipt Date: 20131218
  Transmission Date: 20140711
  Serious: No
  Sender: FDA-Public Use
  Company Number: US-VERTEX PHARMACEUTICALS INC-AE-2011-000561

PATIENT
  Sex: 0

DRUGS (18)
  1. INCIVEK [Suspect]
     Indication: HEPATITIS C
     Dates: start: 20110721, end: 20111023
  2. PEGINTRON [Concomitant]
     Indication: HEPATITIS C
     Route: 058
     Dates: start: 20110623
  3. RIBASPHERE [Concomitant]
     Indication: HEPATITIS C
     Route: 048
     Dates: start: 20110623
  4. BUPROPION [Concomitant]
  5. OMEPRAZOLE [Concomitant]
     Route: 048
  6. ALDACTAZIDE [Concomitant]
     Route: 048
  7. DEMADEX [Concomitant]
     Route: 048
  8. POTASSIUM CHLORIDE [Concomitant]
     Route: 048
  9. VITAMIN D [Concomitant]
  10. VITAMIN A [Concomitant]
  11. ZINC [Concomitant]
  12. PROCRIT [Concomitant]
     Route: 058
  13. NEUPOGEN [Concomitant]
     Route: 058
  14. SEROQUEL [Concomitant]
  15. LAMICTAL [Concomitant]
  16. BENADRYL [Concomitant]
  17. HYDROCORTISONE [Concomitant]
  18. FOLIC ACID [Concomitant]

REACTIONS (4)
  - Depression [Not Recovered/Not Resolved]
  - Anal pruritus [Recovered/Resolved]
  - Anorectal discomfort [Recovered/Resolved]
  - Rash papulosquamous [Not Recovered/Not Resolved]
